FAERS Safety Report 9642203 (Version 5)
Quarter: 2014Q1

REPORT INFORMATION
  Report Type: Report from Study
  Country: PT (occurrence: PT)
  Receive Date: 20131024
  Receipt Date: 20140224
  Transmission Date: 20141002
  Serious: Yes (Hospitalization)
  Sender: FDA-Public Use
  Company Number: PT-ROCHE-1289742

PATIENT
  Age: 44 Year
  Sex: Female
  Weight: 91 kg

DRUGS (26)
  1. PERTUZUMAB [Suspect]
     Indication: HER-2 POSITIVE BREAST CANCER
     Dosage: LOADING DOSE.?LAST DOSE PRIOR TO ADVERSE EVENT: 01/OCT/2013
     Route: 042
     Dates: start: 20131001, end: 20131001
  2. PERTUZUMAB [Suspect]
     Dosage: MAINTENANCE DOSE
     Route: 042
     Dates: start: 20131030
  3. TRASTUZUMAB [Suspect]
     Indication: HER-2 POSITIVE BREAST CANCER
     Dosage: LOADING DOSE. 728 MG?LAST DOSE PRIOR TO ADVERSE EVENT: 01/OCT/2013
     Route: 042
     Dates: start: 20131001, end: 20131001
  4. TRASTUZUMAB [Suspect]
     Dosage: MAINTENANCE DOSE.
     Route: 042
     Dates: start: 20131030
  5. DOCETAXEL [Suspect]
     Indication: HER-2 POSITIVE BREAST CANCER
     Dosage: LAST DOSE PRIOR TO ADVERSE EVENT: 02/OCT/2013?TEMPORARILY INTERRUPTED.
     Route: 042
     Dates: start: 20131002, end: 20131002
  6. DOCETAXEL [Suspect]
     Route: 042
     Dates: start: 20131030
  7. BUSCOPAN [Concomitant]
     Indication: ABDOMINAL PAIN
     Route: 065
     Dates: start: 20130930
  8. METAMIZOL [Concomitant]
     Indication: PAIN PROPHYLAXIS
     Route: 065
     Dates: start: 20130930
  9. EUTIROX [Concomitant]
     Route: 065
     Dates: start: 2007
  10. PARACETAMOL [Concomitant]
     Indication: PAIN
     Route: 065
     Dates: start: 20130930
  11. ARCOXIA [Concomitant]
     Indication: PAIN
     Route: 065
     Dates: start: 20130930
  12. METOCLOPRAMIDE [Concomitant]
     Indication: NAUSEA
     Route: 065
     Dates: start: 20130930
  13. PREDNISOLONE [Concomitant]
     Route: 065
     Dates: start: 20130930
  14. LORAZEPAM [Concomitant]
     Indication: INSOMNIA
     Route: 065
     Dates: start: 20130930
  15. MYCOSTATIN [Concomitant]
     Indication: MUCOSAL INFLAMMATION
     Route: 065
     Dates: start: 20130930
  16. OMEPRAZOLE [Concomitant]
     Indication: PROPHYLAXIS
     Route: 065
     Dates: start: 20130930
  17. BENZYDAMINE [Concomitant]
     Indication: MUCOSAL INFLAMMATION
     Dosage: 1.5 MG/ML
     Route: 065
     Dates: start: 20130930
  18. SYNALAR [Concomitant]
     Route: 054
     Dates: start: 20131031, end: 20131103
  19. VENEX FORTE [Concomitant]
     Route: 065
     Dates: start: 20131031, end: 20131103
  20. VENEX FORTE [Concomitant]
     Dosage: 40 MG/G
     Route: 065
     Dates: start: 20131121, end: 20131123
  21. VENEX FORTE [Concomitant]
     Route: 065
     Dates: start: 20131211, end: 20131214
  22. TRAMAL [Concomitant]
     Route: 065
     Dates: start: 20131101
  23. HALIBUT OIL [Concomitant]
     Dosage: 150 MG/G
     Route: 065
     Dates: start: 20131210, end: 20140107
  24. AMOXICILLIN/CLAVULANIC ACID [Concomitant]
     Dosage: 875/125 MG
     Route: 065
     Dates: start: 20131213, end: 20131220
  25. AMOXICILLIN/CLAVULANIC ACID [Concomitant]
     Route: 065
     Dates: start: 20140107
  26. LOPERAMIDE [Concomitant]
     Dosage: AS REQUIRED
     Route: 065
     Dates: start: 20140107

REACTIONS (1)
  - Systemic inflammatory response syndrome [Recovered/Resolved]
